FAERS Safety Report 7087710-5 (Version None)
Quarter: 2010Q4

REPORT INFORMATION
  Report Type: 
  Country: None (occurrence: None)
  Receive Date: 20101108
  Receipt Date: 20101029
  Transmission Date: 20110411
  Serious: No
  Sender: FDA-Public Use
  Company Number: US-BIOGENIDEC-2010BI038502

PATIENT
  Age: 56 Year
  Sex: Male

DRUGS (2)
  1. TYSABRI [Suspect]
     Indication: MULTIPLE SCLEROSIS
     Route: 042
     Dates: start: 20080701, end: 20090305
  2. TYSABRI [Suspect]
     Route: 042
     Dates: start: 20100419

REACTIONS (3)
  - ABDOMINAL PAIN UPPER [None]
  - HERNIA [None]
  - MUSCULOSKELETAL DISORDER [None]
